FAERS Safety Report 8182645-9 (Version None)
Quarter: 2012Q1

REPORT INFORMATION
  Report Type: 
  Country: None (occurrence: None)
  Receive Date: 20120305
  Receipt Date: 20120228
  Transmission Date: 20120608
  Serious: No
  Sender: FDA-Public Use
  Company Number: US-PFIZER INC-2012053084

PATIENT
  Sex: Female

DRUGS (3)
  1. CYTOMEL [Suspect]
     Dosage: 25 UG, 2X/DAY
     Route: 048
  2. CYTOMEL [Suspect]
     Indication: HYPOTHYROIDISM
     Dosage: 25 UG, 1X/DAY
     Route: 048
  3. SYNTHROID [Concomitant]
     Dosage: UNK

REACTIONS (3)
  - FEELING COLD [None]
  - WEIGHT INCREASED [None]
  - TRI-IODOTHYRONINE INCREASED [None]
